FAERS Safety Report 6920805 (Version 5)
Quarter: 2017Q1

REPORT INFORMATION
  Report Type: Report from Study
  Country: JP (occurrence: JP)
  Receive Date: 20090226
  Receipt Date: 20170201
  Transmission Date: 20170429
  Serious: Yes (Death)
  Sender: FDA-Public Use
  Company Number: PHHY2009JP06448

PATIENT
  Age: 75 Year
  Sex: Female
  Weight: 35 kg

DRUGS (15)
  1. COMTAN [Suspect]
     Active Substance: ENTACAPONE
     Dosage: 100 MG, TID
     Route: 048
     Dates: start: 20071227, end: 20080104
  2. COMTAN [Suspect]
     Active Substance: ENTACAPONE
     Dosage: 300 MG, QD
     Route: 048
     Dates: start: 20071227, end: 20080104
  3. PRAMIPEXOLE DIHYDROCHLORIDE. [Concomitant]
     Active Substance: PRAMIPEXOLE DIHYDROCHLORIDE
     Indication: PARKINSON^S DISEASE
     Dosage: 3 MG, UNK
     Route: 048
     Dates: start: 20061106, end: 20080131
  4. COMTAN [Suspect]
     Active Substance: ENTACAPONE
     Indication: DRUG EFFECT DECREASED
     Dosage: 500 MG, QD
     Route: 048
     Dates: start: 20071101, end: 20071226
  5. LEVODOPA-CARBIDOPA [Concomitant]
     Active Substance: CARBIDOPA\LEVODOPA
     Indication: PARKINSON^S DISEASE
     Dosage: 600 MG, UNK
     Route: 048
     Dates: start: 20060925, end: 20080131
  6. COMTAN [Suspect]
     Active Substance: ENTACAPONE
     Dosage: 500 MG, QD
     Route: 048
     Dates: end: 20080128
  7. NAUZELIN [Concomitant]
     Active Substance: DOMPERIDONE
     Indication: PRODUCT USED FOR UNKNOWN INDICATION
     Dosage: 30 MG, UNK
     Route: 048
     Dates: start: 20070710
  8. SELBEX [Concomitant]
     Active Substance: TEPRENONE
     Indication: PRODUCT USED FOR UNKNOWN INDICATION
     Dosage: 150 MG, UNK
     Route: 048
     Dates: start: 20070710
  9. LUVOX [Concomitant]
     Active Substance: FLUVOXAMINE MALEATE
     Indication: PRODUCT USED FOR UNKNOWN INDICATION
     Dosage: 75 MG, UNK
     Route: 048
     Dates: start: 20070710
  10. COMTAN [Suspect]
     Active Substance: ENTACAPONE
     Dosage: 100 MG, 5QD
     Route: 048
     Dates: start: 20080105, end: 20080128
  11. SEVEN EP [Concomitant]
     Indication: PRODUCT USED FOR UNKNOWN INDICATION
     Dosage: 3 DF, UNK
     Route: 048
     Dates: start: 20070710
  12. MAGLAX [Concomitant]
     Active Substance: MAGNESIUM OXIDE
     Indication: PRODUCT USED FOR UNKNOWN INDICATION
     Dosage: 660 MG, UNK
     Route: 048
     Dates: start: 20070710
  13. RIZE [Concomitant]
     Active Substance: CLOTIAZEPAM
     Indication: PRODUCT USED FOR UNKNOWN INDICATION
     Dosage: 10 MG, UNK
     Route: 048
     Dates: start: 20070710
  14. EVISTA [Concomitant]
     Active Substance: RALOXIFENE HYDROCHLORIDE
     Indication: PRODUCT USED FOR UNKNOWN INDICATION
     Dosage: 60 MG, UNK
     Route: 048
     Dates: start: 20070710
  15. COMTAN [Suspect]
     Active Substance: ENTACAPONE
     Dosage: 100 MG, 5QD
     Route: 048
     Dates: end: 20071226

REACTIONS (5)
  - Gastrointestinal sounds abnormal [Unknown]
  - Cardiac failure acute [Fatal]
  - Constipation [Recovering/Resolving]
  - Abdominal distension [Recovering/Resolving]
  - X-ray gastrointestinal tract abnormal [Unknown]

NARRATIVE: CASE EVENT DATE: 20071226
